FAERS Safety Report 7073622-X (Version None)
Quarter: 2010Q4

REPORT INFORMATION
  Report Type: 
  Country: None (occurrence: None)
  Receive Date: 20101029
  Receipt Date: 20100720
  Transmission Date: 20110411
  Serious: Yes (Hospitalization)
  Sender: FDA-Public Use
  Company Number: A0871420A

PATIENT
  Age: 48 Year
  Sex: Female

DRUGS (5)
  1. ADVAIR DISKUS 100/50 [Suspect]
     Indication: CHRONIC OBSTRUCTIVE PULMONARY DISEASE
     Dosage: 1PUFF TWICE PER DAY
     Route: 055
     Dates: start: 20060101
  2. ALBUTEROL [Concomitant]
  3. XOPENEX [Concomitant]
  4. ATROVENT [Concomitant]
  5. OXYGEN [Concomitant]

REACTIONS (3)
  - CANDIDIASIS [None]
  - DYSPNOEA [None]
  - HEART RATE INCREASED [None]
